FAERS Safety Report 10243503 (Version 1)
Quarter: 2014Q2

REPORT INFORMATION
  Report Type: Spontaneous
  Country: US (occurrence: None)
  Receive Date: 20140616
  Receipt Date: 20140616
  Transmission Date: 20141212
  Serious: Yes (Hospitalization)
  Sender: FDA-Public Use
  Company Number: None

PATIENT
  Age: 50 Year
  Sex: Female
  Weight: 99.79 kg

DRUGS (7)
  1. VITAMIN D3 [Suspect]
     Indication: VITAMIN D DEFICIENCY
     Dates: end: 20131106
  2. CELEBREX [Concomitant]
  3. HYZAAR [Concomitant]
  4. ASPIRIN [Concomitant]
  5. METFORMIN [Concomitant]
  6. REQUIP [Concomitant]
  7. SYNTHROID [Concomitant]

REACTIONS (1)
  - Renal failure [None]
